FAERS Safety Report 12297569 (Version 2)
Quarter: 2016Q2

REPORT INFORMATION
  Report Type: Spontaneous
  Country: US (occurrence: US)
  Receive Date: 20160422
  Receipt Date: 20160607
  Transmission Date: 20160815
  Serious: Yes (Other)
  Sender: FDA-Public Use
  Company Number: US-TEVA-653228USA

PATIENT
  Age: 42 Year
  Sex: Male

DRUGS (18)
  1. NEO/POLY/DEX OINTMENT [Concomitant]
  2. TRAMADOL. [Concomitant]
     Active Substance: TRAMADOL
  3. OXYCONTIN [Concomitant]
     Active Substance: OXYCODONE HYDROCHLORIDE
  4. OFLOXACIN. [Concomitant]
     Active Substance: OFLOXACIN
  5. VITAMIN D [Concomitant]
     Active Substance: CHOLECALCIFEROL
  6. POLYETHYLENE GLYCOL [Concomitant]
     Active Substance: POLYETHYLENE GLYCOLS
  7. OXYCODONE [Concomitant]
     Active Substance: OXYCODONE
  8. COPAXONE [Suspect]
     Active Substance: GLATIRAMER ACETATE
     Indication: MULTIPLE SCLEROSIS
     Route: 058
     Dates: start: 20160322
  9. MIRTAZAPINE. [Concomitant]
     Active Substance: MIRTAZAPINE
  10. CARISOPRODOL. [Concomitant]
     Active Substance: CARISOPRODOL
  11. HYDROCODONE BITARTRATE AND ACETAMINOPHEN [Concomitant]
     Active Substance: ACETAMINOPHEN\HYDROCODONE BITARTRATE
  12. DOCQLACE [Concomitant]
     Active Substance: DOCUSATE SODIUM
  13. DULOXETINE. [Concomitant]
     Active Substance: DULOXETINE
  14. IBUPROFEN. [Concomitant]
     Active Substance: IBUPROFEN
  15. CYCLOBENZAPRINE [Concomitant]
     Active Substance: CYCLOBENZAPRINE
  16. B12 ACTIVE [Concomitant]
  17. MOLYBDAT SODIUM POWDER [Concomitant]
  18. AMOXICILLIN. [Concomitant]
     Active Substance: AMOXICILLIN

REACTIONS (2)
  - Injection site reaction [Unknown]
  - Multiple sclerosis relapse [Unknown]

NARRATIVE: CASE EVENT DATE: 201603
